FAERS Safety Report 6991307-2 (Version None)
Quarter: 2010Q3

REPORT INFORMATION
  Report Type: 
  Country: None (occurrence: None)
  Receive Date: 20100916
  Receipt Date: 20081022
  Transmission Date: 20110219
  Serious: No
  Sender: FDA-Public Use
  Company Number: US-WYE-H06452508

PATIENT
  Sex: Male
  Weight: 59.02 kg

DRUGS (3)
  1. PREMARIN [Suspect]
     Indication: TRANS-SEXUALISM
     Route: 048
     Dates: start: 20050101
  2. SPIRONOLACTONE [Concomitant]
  3. VIVELLE [Concomitant]

REACTIONS (5)
  - BLOOD OESTROGEN DECREASED [None]
  - DIARRHOEA [None]
  - INAPPROPRIATE SCHEDULE OF DRUG ADMINISTRATION [None]
  - INCORRECT ROUTE OF DRUG ADMINISTRATION [None]
  - OVERDOSE [None]
